FAERS Safety Report 5630635-X (Version None)
Quarter: 2008Q1

REPORT INFORMATION
  Report Type: 
  Country: None (occurrence: None)
  Receive Date: 20080211
  Receipt Date: 20080202
  Transmission Date: 20080703
  Serious: Yes (Disabling, Other)
  Sender: FDA-Public Use
  Company Number: 2008AP000393

PATIENT
  Age: 65 Year
  Sex: Male

DRUGS (5)
  1. MIDAZOLAM HCL [Suspect]
     Indication: ANAESTHETIC PREMEDICATION
  2. CLONIDINE HYDROCHLORIDE [Suspect]
     Indication: ANAESTHETIC PREMEDICATION
     Dosage: 50 UG
  3. FENTANYL [Suspect]
     Indication: ANAESTHESIA
  4. EPINEPHRINE [Suspect]
     Indication: ANAESTHETIC PREMEDICATION
  5. BUPIVACAINE [Suspect]
     Indication: ANAESTHESIA
     Dosage: 30 ML; 1X;

REACTIONS (2)
  - HYPOTENSION [None]
  - RADICULITIS BRACHIAL [None]
